FAERS Safety Report 12818731 (Version 1)
Quarter: 2016Q4

REPORT INFORMATION
  Report Type: Spontaneous
  Country: GB (occurrence: GB)
  Receive Date: 20161006
  Receipt Date: 20161006
  Transmission Date: 20170207
  Serious: Yes (Hospitalization)
  Sender: FDA-Public Use
  Company Number: GB-TEVA-698293ACC

PATIENT
  Age: 14 Year
  Sex: Male
  Weight: 81.4 kg

DRUGS (7)
  1. LORAZEPAM. [Concomitant]
     Active Substance: LORAZEPAM
  2. GABAPENTIN. [Suspect]
     Active Substance: GABAPENTIN
     Indication: HEADACHE
     Dosage: 1800 MILLIGRAM DAILY;
     Route: 048
     Dates: start: 20160530, end: 20160911
  3. CLOBAZAM [Concomitant]
     Active Substance: CLOBAZAM
  4. PREDNISOLONE. [Concomitant]
     Active Substance: PREDNISOLONE
  5. SODIUM VALPROATE [Concomitant]
     Active Substance: VALPROATE SODIUM
  6. DIAZEPAM. [Concomitant]
     Active Substance: DIAZEPAM
  7. MIDAZOLAM [Concomitant]
     Active Substance: MIDAZOLAM\MIDAZOLAM HYDROCHLORIDE
     Dosage: ^RESCUE^ MEDICATION.
     Route: 002

REACTIONS (3)
  - Psychiatric decompensation [Recovering/Resolving]
  - Aggression [Recovering/Resolving]
  - Abnormal behaviour [Recovering/Resolving]

NARRATIVE: CASE EVENT DATE: 201605
